FAERS Safety Report 26140190 (Version 2)
Quarter: 2025Q4

REPORT INFORMATION
  Report Type: Spontaneous
  Country: US (occurrence: US)
  Receive Date: 20251210
  Receipt Date: 20251229
  Transmission Date: 20260118
  Serious: Yes (Disabling)
  Sender: SANOFI AVENTIS
  Company Number: US-SANOFI-02740870

PATIENT
  Age: 75 Year
  Sex: Female

DRUGS (1)
  1. DUPIXENT [Suspect]
     Active Substance: DUPILUMAB
     Indication: Eczema
     Dosage: 600 MG, 1X
     Route: 065
     Dates: start: 20251016, end: 20251016

REACTIONS (4)
  - Gait inability [Not Recovered/Not Resolved]
  - Sleep disorder due to a general medical condition [Not Recovered/Not Resolved]
  - Myalgia [Not Recovered/Not Resolved]
  - Arthralgia [Not Recovered/Not Resolved]

NARRATIVE: CASE EVENT DATE: 20251018
